FAERS Safety Report 18235014 (Version 1)
Quarter: 2020Q3

REPORT INFORMATION
  Report Type: Spontaneous
  Country: US (occurrence: US)
  Receive Date: 20200904
  Receipt Date: 20200904
  Transmission Date: 20201103
  Serious: Yes (Death, Hospitalization, Other)
  Sender: FDA-Public Use
  Company Number: US-PURDUE-USA-2020-0164712

PATIENT
  Age: 45 Year
  Sex: Male

DRUGS (1)
  1. OXYCONTIN [Suspect]
     Active Substance: OXYCODONE HYDROCHLORIDE
     Indication: BACK INJURY
     Dosage: UNK, UNK
     Route: 048
     Dates: start: 2017

REACTIONS (5)
  - Myocardial infarction [Fatal]
  - Respiratory failure [Fatal]
  - Drug dependence [Unknown]
  - Hypoxic-ischaemic encephalopathy [Fatal]
  - Overdose [Fatal]

NARRATIVE: CASE EVENT DATE: 20190813
